FAERS Safety Report 22650608 (Version 1)
Quarter: 2023Q2

REPORT INFORMATION
  Report Type: Spontaneous
  Country: US (occurrence: None)
  Receive Date: 20230627
  Receipt Date: 20230627
  Transmission Date: 20230721
  Serious: Yes (Hospitalization)
  Sender: FDA-Public Use
  Company Number: None

PATIENT
  Sex: Female

DRUGS (1)
  1. FINGOLIMOD [Suspect]
     Active Substance: FINGOLIMOD
     Indication: Multiple sclerosis
     Dosage: 0.5 MG ORAL?? TAKE 1 CAPSULE (0.5 MG TOTAL) BY MOUTH 1 (ONE) TIME EACH DAY.?
     Route: 048
     Dates: start: 20221014

REACTIONS (2)
  - COVID-19 [None]
  - Therapy interrupted [None]
